FAERS Safety Report 19800756 (Version 1)
Quarter: 2021Q3

REPORT INFORMATION
  Report Type: Spontaneous
  Country: US (occurrence: US)
  Receive Date: 20210907
  Receipt Date: 20210907
  Transmission Date: 20211014
  Serious: No
  Sender: FDA-Public Use
  Company Number: US-PERRIGO-20US016965

PATIENT
  Age: 64 Year
  Sex: Male
  Weight: 104.31 kg

DRUGS (3)
  1. TRIAMCINOLONE ACETONIDE. [Suspect]
     Active Substance: TRIAMCINOLONE ACETONIDE
     Dosage: 660 MCG  EACH NOSTRIL, WITHIN 3 HOURS
     Route: 045
     Dates: start: 20201123, end: 20201123
  2. MULTIVITAMINS, PLAIN [Concomitant]
     Active Substance: VITAMINS
     Indication: SUPPLEMENTATION THERAPY
     Dosage: UNK
     Route: 065
  3. TRIAMCINOLONE ACETONIDE. [Suspect]
     Active Substance: TRIAMCINOLONE ACETONIDE
     Indication: NASAL CONGESTION
     Dosage: 55  MCG, EACH NOSTIRL, 4 TO 5 TIMES DAILY
     Route: 045
     Dates: start: 20201121, end: 20201123

REACTIONS (3)
  - Therapeutic product effect incomplete [Unknown]
  - Administration site paraesthesia [Recovered/Resolved]
  - Overdose [Recovered/Resolved]

NARRATIVE: CASE EVENT DATE: 20201121
